FAERS Safety Report 23064576 (Version 2)
Quarter: 2023Q4

REPORT INFORMATION
  Report Type: Report from Study
  Country: ZA (occurrence: ZA)
  Receive Date: 20231013
  Receipt Date: 20231101
  Transmission Date: 20240109
  Serious: Yes (Hospitalization)
  Sender: FDA-Public Use
  Company Number: ZA-Eisai Medical Research-EC-2023-147903

PATIENT
  Age: 60 Year
  Sex: Male
  Weight: 90.2 kg

DRUGS (11)
  1. LENVATINIB [Suspect]
     Active Substance: LENVATINIB
     Indication: Clear cell renal cell carcinoma
     Dosage: STARTING DOSE 20 MG, FLUCTUATED DOSE
     Route: 048
     Dates: start: 20230314, end: 20230820
  2. QUAVONLIMAB [Suspect]
     Active Substance: QUAVONLIMAB
     Indication: Clear cell renal cell carcinoma
     Dosage: MK-1308A (MK-1308 25MG + PEMBROLIZUMAB 400MG) UP TO 18 CYCLES OR PD OR DISCONTINUATION
     Route: 042
     Dates: start: 20230314, end: 20230718
  3. ASPAR [BENTIAMINE;MAGNESIUM ASPARTATE;POTASSIUM ASPARTATE;PYRIDOXINE H [Concomitant]
     Dates: start: 202201
  4. HYDROCHLOROTHIAZIDE\TELMISARTAN [Concomitant]
     Active Substance: HYDROCHLOROTHIAZIDE\TELMISARTAN
     Dates: start: 201201
  5. AMLODIPINE [Concomitant]
     Active Substance: AMLODIPINE BESYLATE
     Dates: start: 20230628
  6. LOPERAMIDE [Concomitant]
     Active Substance: LOPERAMIDE
     Dates: start: 20230717
  7. FERROUS SULFATE [Concomitant]
     Active Substance: FERROUS SULFATE
     Dates: start: 202301
  8. FOLIC ACID [Concomitant]
     Active Substance: FOLIC ACID
     Dates: start: 20230101
  9. BISOPROLOL [Concomitant]
     Active Substance: BISOPROLOL\BISOPROLOL FUMARATE
     Dates: start: 20230419
  10. QUETIAPINE [Concomitant]
     Active Substance: QUETIAPINE
     Dates: start: 20230315
  11. PEMBROLIZUMAB [Suspect]
     Active Substance: PEMBROLIZUMAB

REACTIONS (1)
  - Dehydration [Recovered/Resolved]

NARRATIVE: CASE EVENT DATE: 20230821
